FAERS Safety Report 4961045-6 (Version None)
Quarter: 2006Q1

REPORT INFORMATION
  Report Type: 
  Country: None (occurrence: None)
  Receive Date: 20060201
  Receipt Date: 20051201
  Transmission Date: 20060701
  Serious: No
  Sender: FDA-Public Use
  Company Number: 2005PV005358

PATIENT
  Age: 35 Year
  Sex: Female
  Weight: 75.7507 kg

DRUGS (6)
  1. BYETTA [Suspect]
     Indication: DIABETES MELLITUS NON-INSULIN-DEPENDENT
     Dosage: 10 MCG; BID; SC  5 MCG; BID; SC
     Route: 058
     Dates: start: 20050901, end: 20050101
  2. BYETTA [Suspect]
     Indication: DIABETES MELLITUS NON-INSULIN-DEPENDENT
     Dosage: 10 MCG; BID; SC  5 MCG; BID; SC
     Route: 058
     Dates: start: 20050101
  3. METFORMIN [Concomitant]
  4. BLOOD PRESSURE MEDICATION [Concomitant]
  5. CHOLESTEROL MEDICATION [Concomitant]
  6. . [Concomitant]

REACTIONS (1)
  - INJECTION SITE BRUISING [None]
